FAERS Safety Report 7555305-2 (Version None)
Quarter: 2011Q2

REPORT INFORMATION
  Report Type: 
  Country: None (occurrence: None)
  Receive Date: 20110617
  Receipt Date: 20110605
  Transmission Date: 20111010
  Serious: Yes (Other)
  Sender: FDA-Public Use
  Company Number: PHHY2011BR50322

PATIENT
  Sex: Female

DRUGS (2)
  1. TOFRANIL [Suspect]
     Dosage: 150 MG, UNK
  2. TEGRETOL-XR [Suspect]
     Dosage: 400 MG, UNK

REACTIONS (1)
  - GLAUCOMA [None]
